FAERS Safety Report 4823026-2 (Version None)
Quarter: 2005Q4

REPORT INFORMATION
  Report Type: 
  Country: None (occurrence: None)
  Receive Date: 20051107
  Receipt Date: 20051107
  Transmission Date: 20060501
  Serious: Yes (Hospitalization)
  Sender: FDA-Public Use
  Company Number: None

PATIENT
  Age: 79 Year
  Sex: Female
  Weight: 52.1637 kg

DRUGS (1)
  1. CLINDAMYCIN    150MG/ML    HOSPIRA [Suspect]
     Indication: ANTIBIOTIC PROPHYLAXIS
     Dosage: 600MG   1 HOUR PREOP    IV;  900MG  Q8HOURS  IV
     Route: 042
     Dates: start: 20050815, end: 20050816

REACTIONS (10)
  - ABDOMINAL DISTENSION [None]
  - ASTHENIA [None]
  - BODY TEMPERATURE INCREASED [None]
  - CLOSTRIDIUM DIFFICILE TOXIN TEST POSITIVE [None]
  - DIARRHOEA [None]
  - DIZZINESS [None]
  - GASTROENTERITIS [None]
  - NAUSEA [None]
  - POST PROCEDURAL COMPLICATION [None]
  - VOMITING [None]
